FAERS Safety Report 5811769-3 (Version None)
Quarter: 2008Q3

REPORT INFORMATION
  Report Type: 
  Country: None (occurrence: None)
  Receive Date: 20080715
  Receipt Date: 20080715
  Transmission Date: 20090109
  Serious: Yes (Hospitalization)
  Sender: FDA-Public Use
  Company Number: None

PATIENT
  Sex: Female
  Weight: 79.5 kg

DRUGS (3)
  1. LEUCOVORIN CALCIUM [Suspect]
     Dosage: 5597 MG
  2. METHOTREXATE [Suspect]
     Dosage: 19.96 G
  3. TEMOZOLOMIDE [Suspect]
     Dosage: 1400 MG

REACTIONS (2)
  - CONFUSIONAL STATE [None]
  - DISEASE PROGRESSION [None]
